FAERS Safety Report 7042976-2 (Version None)
Quarter: 2010Q4

REPORT INFORMATION
  Report Type: 
  Country: None (occurrence: None)
  Receive Date: 20101013
  Receipt Date: 20100929
  Transmission Date: 20110411
  Serious: Yes (Hospitalization)
  Sender: FDA-Public Use
  Company Number: PHHO2010JP14459

PATIENT
  Sex: Female
  Weight: 27 kg

DRUGS (16)
  1. ACZ885 ACZ+ [Suspect]
     Indication: CRYOPYRIN ASSOCIATED PERIODIC SYNDROME
     Dosage: UNK
     Route: 058
     Dates: start: 20100125
  2. VOLTAREN [Suspect]
     Indication: HEADACHE
     Dosage: 12.5 MG, PRN
     Route: 054
     Dates: start: 20100917
  3. CYTOTEC [Suspect]
     Indication: PEPTIC ULCER
     Dosage: 200 MG, BID
     Route: 048
     Dates: start: 20090601
  4. TAKEPRON [Suspect]
     Indication: PEPTIC ULCER
     Dosage: 15 MG, DAILY
     Route: 048
     Dates: start: 20090601
  5. MUCOSTA [Suspect]
     Indication: PEPTIC ULCER
     Dosage: 100 MG, BID
     Route: 048
     Dates: start: 20090601
  6. PROMAC                                  /JPN/ [Suspect]
     Indication: PEPTIC ULCER
     Dosage: 75 MG, BID
     Route: 048
     Dates: start: 20090601
  7. ACETYLSALICYLIC ACID SRT [Suspect]
     Indication: CHRONIC INFANTILE NEUROLOGICAL CUTANEOUS AND ARTICULAR SYNDROME
     Dosage: 0.2 G, TID
     Route: 048
     Dates: start: 19860101
  8. PREDONINE [Suspect]
     Indication: CHRONIC INFANTILE NEUROLOGICAL CUTANEOUS AND ARTICULAR SYNDROME
     Dosage: 5 MG, DAILY
     Route: 048
     Dates: start: 19860101
  9. RHEUMATREX [Suspect]
     Indication: CHRONIC INFANTILE NEUROLOGICAL CUTANEOUS AND ARTICULAR SYNDROME
     Dosage: 2 MG, QW
     Route: 048
     Dates: start: 20100222
  10. SIGMART [Suspect]
     Indication: CARDIOMYOPATHY
     Dosage: 5 MG, BID
     Route: 048
     Dates: start: 20090217
  11. ARTIST [Suspect]
     Indication: CARDIOMYOPATHY
     Dosage: 2.5 MG, BID
     Route: 048
     Dates: start: 20090601
  12. BLOPRESS [Suspect]
     Indication: CARDIOMYOPATHY
     Dosage: 2 MG, DAILY
     Route: 048
     Dates: start: 20090601
  13. LOXONIN [Suspect]
     Indication: HEADACHE
     Dosage: 60 MG, PRN
     Route: 048
     Dates: start: 20100921
  14. FOLIAMIN [Concomitant]
     Indication: PROPHYLAXIS
  15. BIOFERMIN [Concomitant]
     Indication: ABDOMINAL PAIN
  16. KETOPROFEN [Concomitant]
     Indication: ARTHRALGIA

REACTIONS (2)
  - HEADACHE [None]
  - SINOATRIAL BLOCK [None]
